FAERS Safety Report 19004801 (Version 2)
Quarter: 2021Q1

REPORT INFORMATION
  Report Type: Spontaneous
  Country: US (occurrence: US)
  Receive Date: 20210312
  Receipt Date: 20210324
  Transmission Date: 20210420
  Serious: Yes (Other)
  Sender: FDA-Public Use
  Company Number: US-TEVA-2021-US-1889518

PATIENT
  Age: 64 Year
  Sex: Male

DRUGS (8)
  1. MULTIVITAMIN ADULT [Concomitant]
     Route: 048
  2. AMLODIPINE BESILATE 5 MG [Concomitant]
     Route: 048
  3. CLONAZEPAM 1 MG [Concomitant]
     Active Substance: CLONAZEPAM
     Route: 048
  4. SIMVASTATIN 20 MG [Concomitant]
     Active Substance: SIMVASTATIN
     Route: 048
  5. POTASSIUM CITRATE 5 MEQ (540 MG) [Concomitant]
     Route: 048
  6. TYLENOL EXTRA STRENGTH [Concomitant]
     Active Substance: ACETAMINOPHEN
  7. AUSTEDO [Suspect]
     Active Substance: DEUTETRABENAZINE
     Dosage: 1 DOSE
     Route: 048
     Dates: end: 202103
  8. AUSTEDO [Suspect]
     Active Substance: DEUTETRABENAZINE
     Indication: TARDIVE DYSKINESIA
     Dosage: 6 MILLIGRAM DAILY;
     Route: 048
     Dates: start: 202102

REACTIONS (4)
  - Confusional state [Unknown]
  - Tremor [Unknown]
  - Tinnitus [Unknown]
  - Inappropriate schedule of product administration [Unknown]

NARRATIVE: CASE EVENT DATE: 2021
